FAERS Safety Report 9614068 (Version 5)
Quarter: 2015Q3

REPORT INFORMATION
  Report Type: Spontaneous
  Country: CA (occurrence: CA)
  Receive Date: 20131011
  Receipt Date: 20150721
  Transmission Date: 20151125
  Serious: Yes (Life-Threatening, Hospitalization, Other)
  Sender: FDA-Public Use
  Company Number: CA-ROCHE-1286700

PATIENT
  Age: 45 Year
  Sex: Male
  Weight: 62 kg

DRUGS (7)
  1. XOLAIR [Suspect]
     Active Substance: OMALIZUMAB
     Route: 065
     Dates: start: 20130905
  2. TYLENOL [Suspect]
     Active Substance: ACETAMINOPHEN
     Indication: HEADACHE
     Route: 065
  3. ZENHALE [Concomitant]
     Active Substance: FORMOTEROL FUMARATE\MOMETASONE FUROATE
     Route: 065
     Dates: start: 2014
  4. XOLAIR [Suspect]
     Active Substance: OMALIZUMAB
     Route: 058
     Dates: start: 20140513
  5. ADVAIR HFA [Concomitant]
     Active Substance: FLUTICASONE PROPIONATE\SALMETEROL XINAFOATE
  6. XOLAIR [Suspect]
     Active Substance: OMALIZUMAB
     Route: 065
     Dates: start: 20131003
  7. XOLAIR [Suspect]
     Active Substance: OMALIZUMAB
     Indication: ASTHMA
     Route: 058
     Dates: start: 20130321

REACTIONS (14)
  - Limb injury [Unknown]
  - Vomiting [Unknown]
  - Musculoskeletal discomfort [Unknown]
  - Dyspepsia [Unknown]
  - Nausea [Unknown]
  - Body temperature decreased [Unknown]
  - Myocardial infarction [Recovered/Resolved]
  - Headache [Recovered/Resolved]
  - Arthropathy [Unknown]
  - Blood pressure increased [Unknown]
  - Pain [Not Recovered/Not Resolved]
  - Fatigue [Unknown]
  - Migraine [Unknown]
  - Oedema mucosal [Unknown]

NARRATIVE: CASE EVENT DATE: 201305
